FAERS Safety Report 6010650-7 (Version None)
Quarter: 2008Q4

REPORT INFORMATION
  Report Type: 
  Country: None (occurrence: None)
  Receive Date: 20081218
  Receipt Date: 20081212
  Transmission Date: 20090506
  Serious: Yes (Death, Hospitalization)
  Sender: FDA-Public Use
  Company Number: CH-BAYER-200832694GPV

PATIENT
  Age: 86 Year
  Sex: Female

DRUGS (3)
  1. CIPROFLOXACIN HCL [Suspect]
     Indication: DRUG USE FOR UNKNOWN INDICATION
     Route: 048
     Dates: start: 20080401, end: 20080401
  2. ROCEPHIN [Suspect]
     Indication: DRUG USE FOR UNKNOWN INDICATION
     Route: 051
     Dates: start: 20080401, end: 20080401
  3. FLAGYL [Suspect]
     Indication: DRUG USE FOR UNKNOWN INDICATION
     Route: 048
     Dates: start: 20080401, end: 20080401

REACTIONS (5)
  - CLOSTRIDIUM DIFFICILE COLITIS [None]
  - HYPOALBUMINAEMIA [None]
  - HYPOVOLAEMIA [None]
  - PSEUDOMEMBRANOUS COLITIS [None]
  - RENAL FAILURE [None]
